FAERS Safety Report 13489885 (Version 1)
Quarter: 2017Q2

REPORT INFORMATION
  Report Type: Report from Study
  Country: US (occurrence: US)
  Receive Date: 20170426
  Receipt Date: 20170426
  Transmission Date: 20170830
  Serious: Yes (Other)
  Sender: FDA-Public Use
  Company Number: US-BAXALTA-2016BLT008170

PATIENT
  Sex: Female

DRUGS (2)
  1. VITAMIN D [Suspect]
     Active Substance: CHOLECALCIFEROL
     Indication: PRODUCT USED FOR UNKNOWN INDICATION
     Dosage: UNK
     Route: 065
  2. HYQVIA [Suspect]
     Active Substance: HUMAN IMMUNOGLOBULIN G\HYALURONIDASE RECOMBINANT HUMAN
     Indication: IMMUNODEFICIENCY COMMON VARIABLE
     Dosage: UNK
     Route: 065

REACTIONS (14)
  - Malaise [Unknown]
  - Thrombosis [Unknown]
  - Hypovolaemia [Unknown]
  - Uterine disorder [Unknown]
  - Hypothyroidism [Unknown]
  - Vitamin D deficiency [Unknown]
  - Bronchitis [Unknown]
  - Menorrhagia [Unknown]
  - Blood sodium decreased [Unknown]
  - Vitamin B12 deficiency [Unknown]
  - Nephrolithiasis [Unknown]
  - Uterine pain [Unknown]
  - Contusion [Unknown]
  - Uterine spasm [Unknown]
